FAERS Safety Report 25115338 (Version 2)
Quarter: 2025Q4

REPORT INFORMATION
  Report Type: Report from Study
  Country: EU (occurrence: EU)
  Receive Date: 20250324
  Receipt Date: 20251029
  Transmission Date: 20260119
  Serious: No
  Sender: SANDOZ
  Company Number: EU-SANDOZ-SDZ2025IT017775

PATIENT
  Age: 14 Year
  Sex: Male
  Weight: 36 kg

DRUGS (2)
  1. OMNITROPE [Suspect]
     Active Substance: SOMATROPIN
     Indication: Growth hormone deficiency
     Dosage: 1.4 MG, LIQUID
     Route: 058
     Dates: start: 20240503
  2. OMNITROPE [Suspect]
     Active Substance: SOMATROPIN
     Dosage: 1.5 MG
     Route: 058
     Dates: start: 20250319

REACTIONS (2)
  - Drug dose omission by device [Unknown]
  - Device use issue [Unknown]

NARRATIVE: CASE EVENT DATE: 20250318
